FAERS Safety Report 24164654 (Version 3)
Quarter: 2024Q4

REPORT INFORMATION
  Report Type: Spontaneous
  Country: AR (occurrence: AR)
  Receive Date: 20240801
  Receipt Date: 20241223
  Transmission Date: 20250115
  Serious: Yes (Other)
  Sender: SANDOZ
  Company Number: AR-SANDOZ-SDZ2024AR069333

PATIENT
  Age: 11 Year
  Sex: Male
  Weight: 31.5 kg

DRUGS (3)
  1. OMNITROPE [Suspect]
     Active Substance: SOMATROPIN
     Dosage: 1.5 MILLIGRAMS, 7 TIMES A WEEK
     Route: 058
  2. OMNITROPE [Suspect]
     Active Substance: SOMATROPIN
     Indication: Growth retardation
     Dosage: 1.3 UNK, QW
     Route: 058
  3. OMNITROPE [Suspect]
     Active Substance: SOMATROPIN
     Indication: Growth hormone deficiency
     Dosage: 1.3 MG, QW
     Route: 058
     Dates: start: 20210922

REACTIONS (2)
  - Developmental hip dysplasia [Unknown]
  - Pain [Unknown]

NARRATIVE: CASE EVENT DATE: 20240726
